FAERS Safety Report 13226317 (Version 1)
Quarter: 2017Q1

REPORT INFORMATION
  Report Type: Spontaneous
  Country: US (occurrence: US)
  Receive Date: 20170213
  Receipt Date: 20170213
  Transmission Date: 20170428
  Serious: No
  Sender: FDA-Public Use
  Company Number: US-PFIZER INC-2017061048

PATIENT
  Age: 56 Year
  Sex: Female
  Weight: 88 kg

DRUGS (4)
  1. ZALEPLON. [Suspect]
     Active Substance: ZALEPLON
  2. LYRICA [Concomitant]
     Active Substance: PREGABALIN
     Indication: FIBROMYALGIA
     Dosage: 150 MG, DAILY; TWO 75MG CAPSULES BY MOUTH AT NIGHT
     Route: 048
     Dates: start: 201608
  3. TYLENOL EXTRA STRENGTH [Concomitant]
     Active Substance: ACETAMINOPHEN
     Indication: PAIN
     Dosage: 2 DF, AS NEEDED
  4. TRAMADOL. [Concomitant]
     Active Substance: TRAMADOL
     Indication: PAIN
     Dosage: UNK

REACTIONS (1)
  - Depressed mood [Unknown]
